FAERS Safety Report 7712028-4 (Version None)
Quarter: 2011Q3

REPORT INFORMATION
  Report Type: 
  Country: None (occurrence: None)
  Receive Date: 20110826
  Receipt Date: 20110811
  Transmission Date: 20111222
  Serious: Yes (Other)
  Sender: FDA-Public Use
  Company Number: AU-TYCO HEALTHCARE/MALLINCKRODT-T201101611

PATIENT
  Age: 55 Year
  Sex: Male

DRUGS (5)
  1. EXALGO [Suspect]
     Dosage: 12 MG, UNK
     Route: 048
  2. EXALGO [Suspect]
     Dosage: 16 MG, UNK
     Route: 048
  3. EXALGO [Suspect]
     Indication: PAIN
     Dosage: UNK
     Route: 048
  4. EXALGO [Suspect]
     Dosage: 16 MG, UNK
     Route: 048
  5. DURAGESIC-100 [Concomitant]

REACTIONS (5)
  - SWELLING FACE [None]
  - BREAKTHROUGH PAIN [None]
  - WRONG TECHNIQUE IN DRUG USAGE PROCESS [None]
  - ARTHROPOD STING [None]
  - INTENTIONAL DRUG MISUSE [None]
